FAERS Safety Report 13898619 (Version 1)
Quarter: 2017Q3

REPORT INFORMATION
  Report Type: Spontaneous
  Country: US (occurrence: None)
  Receive Date: 20170817
  Receipt Date: 20170817
  Transmission Date: 20171127
  Serious: Yes (Death)
  Sender: FDA-Public Use
  Company Number: None

PATIENT
  Age: 64 Year
  Sex: Female
  Weight: 74.9 kg

DRUGS (2)
  1. FRESENIUS NORMAL SALINE [Concomitant]
  2. VANCOMYCIN 1 GRAM / 250 ML NSS [Suspect]
     Active Substance: VANCOMYCIN HYDROCHLORIDE
     Indication: EAR INFECTION
     Dosage: 1 GRAM X 5 TREATMENTS IV
     Route: 042
     Dates: start: 20170714, end: 20170724

REACTIONS (3)
  - Unresponsive to stimuli [None]
  - Injection related reaction [None]
  - Dyspnoea [None]

NARRATIVE: CASE EVENT DATE: 20170714
